FAERS Safety Report 8422014 (Version 6)
Quarter: 2013Q4

REPORT INFORMATION
  Report Type: Spontaneous
  Country: US (occurrence: US)
  Receive Date: 20120223
  Receipt Date: 20131028
  Transmission Date: 20140711
  Serious: Yes (Other)
  Sender: FDA-Public Use
  Company Number: US-PFIZER INC-2012046090

PATIENT
  Age: 64 Year
  Sex: Female
  Weight: 73 kg

DRUGS (8)
  1. PROTONIX [Suspect]
     Indication: GASTROOESOPHAGEAL REFLUX DISEASE
     Dosage: 40 MG, 2X/DAY
     Route: 048
     Dates: start: 2008
  2. XANAX [Suspect]
     Indication: ANXIETY
     Dosage: UNK
     Dates: start: 2008
  3. HYDROCHLOROTHIAZIDE [Concomitant]
     Dosage: 25 MG, UNK
  4. LISINOPRIL [Concomitant]
     Dosage: 10 MG, UNK
  5. ADVAIR [Concomitant]
     Dosage: UNK
  6. ALBUTEROL [Concomitant]
     Dosage: UNK
  7. AMITRIPTYLINE [Concomitant]
     Dosage: 20 MG, 2X/DAY
  8. ZYRTEC [Concomitant]
     Indication: RHINITIS ALLERGIC
     Dosage: UNK

REACTIONS (17)
  - Intestinal obstruction [Unknown]
  - Intracranial aneurysm [Unknown]
  - Dysphemia [Unknown]
  - Weight decreased [Unknown]
  - Eating disorder [Unknown]
  - Malaise [Unknown]
  - Migraine [Unknown]
  - Anxiety [Unknown]
  - Hypertension [Unknown]
  - Rash [Unknown]
  - Urine analysis abnormal [Unknown]
  - Sciatic nerve neuropathy [Unknown]
  - Pain [Unknown]
  - Headache [Unknown]
  - Renal cyst [Unknown]
  - Dyskinesia [Unknown]
  - Injury associated with device [Unknown]
